FAERS Safety Report 24010782 (Version 1)
Quarter: 2024Q2

REPORT INFORMATION
  Report Type: Spontaneous
  Country: US (occurrence: None)
  Receive Date: 20240625
  Receipt Date: 20240625
  Transmission Date: 20240716
  Serious: Yes (Other)
  Sender: FDA-Public Use
  Company Number: None

PATIENT
  Age: 38 Year
  Sex: Female

DRUGS (1)
  1. KESIMPTA [Suspect]
     Active Substance: OFATUMUMAB
     Indication: Multiple sclerosis
     Dosage: FREQUENCY : AS DIRECTED;?
     Dates: start: 20240619

REACTIONS (5)
  - Pyrexia [None]
  - Headache [None]
  - Vomiting [None]
  - Chills [None]
  - Urticaria [None]

NARRATIVE: CASE EVENT DATE: 20240619
